FAERS Safety Report 17536652 (Version 1)
Quarter: 2020Q1

REPORT INFORMATION
  Report Type: Report from Study
  Country: IL (occurrence: IL)
  Receive Date: 20200313
  Receipt Date: 20200313
  Transmission Date: 20200409
  Serious: Yes (Hospitalization, Other)
  Sender: FDA-Public Use
  Company Number: IL-IPSEN BIOPHARMACEUTICALS, INC.-2019-11476

PATIENT
  Age: 67 Year
  Sex: Male

DRUGS (7)
  1. XARTAL XL [Concomitant]
  2. SPRYCEL [Concomitant]
     Active Substance: DASATINIB
  3. ELIQUIS [Concomitant]
     Active Substance: APIXABAN
  4. SOMATULINE [Suspect]
     Active Substance: LANREOTIDE ACETATE
     Indication: NEUROENDOCRINE TUMOUR
     Route: 065
     Dates: start: 20160118
  5. BONDORMIN [Concomitant]
     Active Substance: BROTIZOLAM
  6. FUSID [Concomitant]
  7. CARDILOC [Concomitant]
     Active Substance: BISOPROLOL FUMARATE

REACTIONS (7)
  - Urosepsis [Recovered/Resolved]
  - Pulmonary oedema [Recovered/Resolved]
  - Haemoglobin decreased [Not Recovered/Not Resolved]
  - Malaise [Not Recovered/Not Resolved]
  - Off label use [Unknown]
  - Urinary retention [Recovered/Resolved]
  - Platelet count decreased [Not Recovered/Not Resolved]

NARRATIVE: CASE EVENT DATE: 20160118
